FAERS Safety Report 6558401-1 (Version None)
Quarter: 2010Q1

REPORT INFORMATION
  Report Type: 
  Country: None (occurrence: None)
  Receive Date: 20100126
  Receipt Date: 20100112
  Transmission Date: 20100710
  Serious: Yes (Hospitalization)
  Sender: FDA-Public Use
  Company Number: HCDA20100001

PATIENT
  Age: 60 Year
  Sex: Female

DRUGS (6)
  1. HYDROCODONE/ACETAMINOPHEN (PARACETAMOL, HYDROCODONE BITARTRATE) (TABLE [Suspect]
     Indication: DRUG USE FOR UNKNOWN INDICATION
     Dosage: ORAL
     Route: 048
  2. DEXTROMETHORPHAN HYDROBROMIDE [Suspect]
     Indication: UPPER RESPIRATORY TRACT INFECTION
  3. PROPOXYPHENE (DEXTROPROPOXYPHIENE) (UNKNOWN) [Suspect]
     Indication: DRUG USE FOR UNKNOWN INDICATION
  4. ATENOLOL (ATENOLOL) (UNKNOWN) (ATENOLOL) [Concomitant]
  5. FUROSEMIDE (FUROSEMIDE) (UNKNOWN) (FUROSEMIDE) [Concomitant]
  6. ESOMEPRAZOLE (ESOMEPRAZOLE) (UNKNOWN) (ESOMEPRAZOLE) [Concomitant]

REACTIONS (13)
  - AGITATION [None]
  - AMNESTIC DISORDER [None]
  - BLOOD PRESSURE INCREASED [None]
  - DELIRIUM [None]
  - DELUSION [None]
  - DRUG EFFECT DECREASED [None]
  - HALLUCINATION, OLFACTORY [None]
  - HALLUCINATION, VISUAL [None]
  - INCORRECT DOSE ADMINISTERED [None]
  - PSYCHOTIC DISORDER [None]
  - THINKING ABNORMAL [None]
  - URINARY TRACT INFECTION [None]
  - WITHDRAWAL SYNDROME [None]
